FAERS Safety Report 8763660 (Version 2)
Quarter: 2012Q4

REPORT INFORMATION
  Report Type: 
  Country: DE (occurrence: DE)
  Receive Date: 20120828
  Receipt Date: 20120828
  Transmission Date: 20130627
  Serious: Yes (Life-Threatening, Hospitalization)
  Sender: FDA-Public Use
  Company Number: DE-VERTEX PHARMACEUTICAL INC.-000000000000000501

PATIENT
  Sex: Male
  Weight: 107 kg

DRUGS (11)
  1. TELAPREVIR [Suspect]
     Indication: HEPATITIS C
     Dosage: UNK
     Route: 048
     Dates: start: 20120113, end: 20120402
  2. PEGASYS [Suspect]
     Indication: HEPATITIS C
     Dosage: 180 ?g, UNK
     Route: 058
     Dates: start: 20120113, end: 20120402
  3. COPEGUS [Suspect]
     Indication: HEPATITIS C
     Dosage: 1600 mg, qd
     Route: 048
     Dates: start: 20120113, end: 20120402
  4. INSULIN [Concomitant]
     Route: 065
  5. INSULIN [Concomitant]
     Dosage: Dosage Form: Injection
  6. OMEPRAZOLE [Concomitant]
     Route: 065
  7. OMEPRAZOLE [Concomitant]
     Dosage: Dosage Form: Unspecified
  8. BISOPROLOL [Concomitant]
     Route: 065
  9. BISOPROLOL [Concomitant]
     Dosage: Dosage Form: Unspecified
  10. RAMIPRIL HCT [Concomitant]
     Route: 065
  11. RAMIPRIL HCT [Concomitant]
     Dosage: Dosage Form: Unspecified

REACTIONS (2)
  - Anaemia [Unknown]
  - Hepatic cirrhosis [Recovered/Resolved]
